FAERS Safety Report 7344579-9 (Version None)
Quarter: 2011Q1

REPORT INFORMATION
  Report Type: 
  Country: None (occurrence: None)
  Receive Date: 20110310
  Receipt Date: 20100804
  Transmission Date: 20110831
  Serious: Yes (Hospitalization)
  Sender: FDA-Public Use
  Company Number: US-BAYER-201019471NA

PATIENT
  Sex: Female
  Weight: 57.6 kg

DRUGS (7)
  1. YASMIN [Suspect]
     Indication: CONTRACEPTION
     Dosage: UNK
     Dates: start: 20060301, end: 20070601
  2. NOVOLOG [Concomitant]
     Indication: TYPE 1 DIABETES MELLITUS
     Dosage: UNK
     Dates: start: 19930101
  3. INSULIN [Concomitant]
  4. VALTREX [Concomitant]
     Indication: HERPES VIRUS INFECTION
  5. CLARITHROMYCIN [Concomitant]
     Dosage: 500 MG, UNK
  6. BENZONATATE [Concomitant]
     Dosage: 100 MG, UNK
  7. YAZ [Suspect]
     Indication: CONTRACEPTION
     Dosage: UNK UNK, QD
     Route: 048
     Dates: start: 20071101, end: 20080601

REACTIONS (2)
  - CHOLECYSTITIS CHRONIC [None]
  - FOCAL NODULAR HYPERPLASIA [None]
